FAERS Safety Report 7121084-6 (Version None)
Quarter: 2010Q4

REPORT INFORMATION
  Report Type: 
  Country: None (occurrence: None)
  Receive Date: 20101124
  Receipt Date: 20101118
  Transmission Date: 20110411
  Serious: Yes (Disabling)
  Sender: FDA-Public Use
  Company Number: JP-BRISTOL-MYERS SQUIBB COMPANY-15397573

PATIENT
  Age: 57 Year
  Sex: Female

DRUGS (3)
  1. TAXOL [Suspect]
     Indication: BREAST CANCER
     Dosage: ALSO TAKEN ON 25APR2006
     Route: 041
  2. ENDOXAN [Suspect]
     Dosage: ALSO TAKEN ON 25APR2006
  3. ADRIACIN [Suspect]
     Dosage: ALSO TAKEN ON 25APR2006

REACTIONS (1)
  - OLFACTORY NERVE DISORDER [None]
